FAERS Safety Report 10040549 (Version 2)
Quarter: 2014Q1

REPORT INFORMATION
  Report Type: Spontaneous
  Country: DE (occurrence: DE)
  Receive Date: 20140327
  Receipt Date: 20140327
  Transmission Date: 20141002
  Serious: Yes (Other)
  Sender: FDA-Public Use
  Company Number: DE-009507513-1309DEU013234

PATIENT
  Age: 36 Year
  Sex: Female

DRUGS (1)
  1. IMPLANON NXT [Suspect]
     Indication: CONTRACEPTION
     Dosage: RIGHT ARM
     Route: 030
     Dates: start: 20110328, end: 20140312

REACTIONS (6)
  - Surgery [Recovered/Resolved]
  - Overdose [Unknown]
  - Medical device complication [Recovered/Resolved]
  - Device deployment issue [Recovered/Resolved]
  - Device dislocation [Recovered/Resolved]
  - Incorrect route of drug administration [Unknown]
